FAERS Safety Report 4651477-8 (Version None)
Quarter: 2005Q2

REPORT INFORMATION
  Report Type: 
  Country: None (occurrence: None)
  Receive Date: 20050502
  Receipt Date: 20050419
  Transmission Date: 20051028
  Serious: Yes (Other)
  Sender: FDA-Public Use
  Company Number: 2005062961

PATIENT
  Sex: Male
  Weight: 95.2554 kg

DRUGS (3)
  1. BEXTRA [Suspect]
     Indication: ARTHRITIS
     Dosage: 20 MG (20 MG, 1 IN 1 D), ORAL
     Route: 048
     Dates: start: 20030101
  2. OXYCODONE HYDROCHLORIDE AND ACETAMINOPHEN [Concomitant]
  3. ATORVASTATIN CALCIUM [Concomitant]

REACTIONS (5)
  - HERNIA [None]
  - MALIGNANT MELANOMA [None]
  - RASH PRURITIC [None]
  - RASH SCALY [None]
  - SKIN EXFOLIATION [None]
